FAERS Safety Report 7748957-5 (Version None)
Quarter: 2011Q3

REPORT INFORMATION
  Report Type: 
  Country: None (occurrence: None)
  Receive Date: 20110914
  Receipt Date: 20110819
  Transmission Date: 20111222
  Serious: No
  Sender: FDA-Public Use
  Company Number: US-MYLANLABS-2011S1015664

PATIENT
  Age: 64 Year
  Sex: Female

DRUGS (1)
  1. BUDESONIDE [Suspect]
     Indication: COLITIS

REACTIONS (2)
  - COLITIS [None]
  - DRUG INEFFECTIVE [None]
